FAERS Safety Report 19452906 (Version 3)
Quarter: 2021Q3

REPORT INFORMATION
  Report Type: Spontaneous
  Country: US (occurrence: US)
  Receive Date: 20210623
  Receipt Date: 20210917
  Transmission Date: 20211014
  Serious: Yes (Hospitalization, Other)
  Sender: FDA-Public Use
  Company Number: US-ORGANON-O2106USA001808

PATIENT
  Age: 24 Year
  Sex: Female

DRUGS (1)
  1. NEXPLANON [Suspect]
     Active Substance: ETONOGESTREL
     Indication: CONTRACEPTION
     Dosage: 1 IMPLANT OF 68 MG, ONE TIME
     Route: 059
     Dates: start: 202101

REACTIONS (2)
  - Sickle cell anaemia with crisis [Unknown]
  - Adverse event [Unknown]

NARRATIVE: CASE EVENT DATE: 2021
